FAERS Safety Report 18827070 (Version 1)
Quarter: 2021Q1

REPORT INFORMATION
  Report Type: Spontaneous
  Country: US (occurrence: US)
  Receive Date: 20210201
  Receipt Date: 20210201
  Transmission Date: 20210419
  Serious: No
  Sender: FDA-Public Use
  Company Number: US-ABBVIE-20K-163-3448128-00

PATIENT

DRUGS (4)
  1. MTX [Suspect]
     Active Substance: METHOTREXATE SODIUM
     Dosage: 1MG SHOT
     Route: 065
  2. HUMIRA [Suspect]
     Active Substance: ADALIMUMAB
     Indication: PSORIATIC ARTHROPATHY
     Route: 058
  3. MTX [Suspect]
     Active Substance: METHOTREXATE SODIUM
     Dosage: PILLS
     Route: 065
  4. MTX [Suspect]
     Active Substance: METHOTREXATE SODIUM
     Indication: PSORIATIC ARTHROPATHY
     Dosage: PILLS
     Route: 065

REACTIONS (2)
  - Psoriatic arthropathy [Unknown]
  - Illness [Unknown]

NARRATIVE: CASE EVENT DATE: 201912
